FAERS Safety Report 17994645 (Version 3)
Quarter: 2020Q4

REPORT INFORMATION
  Report Type: Other
  Country: ES (occurrence: ES)
  Receive Date: 20200708
  Receipt Date: 20201202
  Transmission Date: 20210113
  Serious: Yes (Other)
  Sender: FDA-Public Use
  Company Number: ES-ASTELLAS-2020US022648

PATIENT
  Age: 12 Year
  Sex: Female

DRUGS (10)
  1. ERLOTINIB [Suspect]
     Active Substance: ERLOTINIB
     Indication: RESPIRATORY PAPILLOMA
     Route: 065
  2. ERLOTINIB [Suspect]
     Active Substance: ERLOTINIB
     Indication: LARYNGEAL PAPILLOMA
  3. GARDASIL [Suspect]
     Active Substance: HUMAN PAPILLOMAVIRUS QUADRIVALENT (TYPES 6, 11, 16, AND 18) VACCINE, RECOMBINANT
     Indication: RESPIRATORY PAPILLOMA
     Dosage: UNK, UNKNOWN FREQ.
     Route: 065
  4. INTERFERON ALFA-2B [Suspect]
     Active Substance: INTERFERON ALFA-2B
     Indication: RESPIRATORY PAPILLOMA
  5. CIDOFOVIR. [Suspect]
     Active Substance: CIDOFOVIR
     Indication: RESPIRATORY PAPILLOMA
     Dosage: UNK UNK, UNKNOWN FREQ.
     Route: 065
  6. GARDASIL [Suspect]
     Active Substance: HUMAN PAPILLOMAVIRUS QUADRIVALENT (TYPES 6, 11, 16, AND 18) VACCINE, RECOMBINANT
     Indication: LARYNGEAL PAPILLOMA
     Dosage: UNK UNK, ONCE DAILY
     Route: 065
     Dates: start: 200707, end: 200707
  7. CELECOXIB. [Suspect]
     Active Substance: CELECOXIB
     Indication: RESPIRATORY PAPILLOMA
     Route: 042
  8. CELECOXIB. [Suspect]
     Active Substance: CELECOXIB
     Indication: LARYNGEAL PAPILLOMA
  9. INTERFERON ALFA-2B [Suspect]
     Active Substance: INTERFERON ALFA-2B
     Indication: LARYNGEAL PAPILLOMA
     Dosage: UNK, UNKNOWN FREQ. (4,5 MILLION OF UNITS, ALTERNATE DAYS)
     Route: 058
     Dates: start: 200112, end: 200201
  10. CIDOFOVIR. [Suspect]
     Active Substance: CIDOFOVIR
     Indication: LARYNGEAL PAPILLOMA

REACTIONS (3)
  - Laryngeal papilloma [Recovering/Resolving]
  - Respiratory papilloma [Recovering/Resolving]
  - Papilloma viral infection [Recovering/Resolving]
